FAERS Safety Report 5759910-5 (Version None)
Quarter: 2008Q2

REPORT INFORMATION
  Report Type: 
  Country: None (occurrence: None)
  Receive Date: 20080605
  Receipt Date: 20080602
  Transmission Date: 20081010
  Serious: Yes (Hospitalization)
  Sender: FDA-Public Use
  Company Number: PL-BRISTOL-MYERS SQUIBB COMPANY-14213029

PATIENT
  Age: 66 Year
  Sex: Male

DRUGS (5)
  1. ENTECAVIR [Suspect]
     Indication: HEPATITIS B
     Route: 048
     Dates: start: 20071009, end: 20080422
  2. ENTECAVIR [Suspect]
     Indication: HEPATIC FAILURE
     Route: 048
     Dates: start: 20071009, end: 20080422
  3. INSULIN [Concomitant]
     Dates: start: 19990101
  4. FUROSEMIDE [Concomitant]
     Dates: start: 20070101
  5. SPIRONOLACTONE [Concomitant]
     Dates: start: 20070101

REACTIONS (1)
  - HEPATIC NEOPLASM MALIGNANT [None]
